FAERS Safety Report 5415781-8 (Version None)
Quarter: 2007Q3

REPORT INFORMATION
  Report Type: 
  Country: None (occurrence: None)
  Receive Date: 20070713
  Receipt Date: 20070306
  Transmission Date: 20080115
  Serious: Yes (Hospitalization)
  Sender: FDA-Public Use
  Company Number: US-JNJFOC-20060904340

PATIENT
  Age: 35 Year
  Sex: Female

DRUGS (5)
  1. ORTHO EVRA [Suspect]
     Indication: CONTRACEPTION
     Dosage: TRANSDERMAL
     Route: 062
     Dates: start: 20041101, end: 20050214
  2. ORTHO EVRA [Suspect]
     Indication: CONTRACEPTION
     Dosage: TRANSDERMAL
     Route: 062
     Dates: start: 20050201, end: 20050302
  3. PROVERA [Suspect]
     Indication: MENORRHAGIA
     Dosage: 10 MG, 1 IN 1 DAY, ORAL
     Route: 048
     Dates: start: 20050214
  4. WELLBUTRIN [Concomitant]
  5. FIORINAL [Concomitant]

REACTIONS (3)
  - MENORRHAGIA [None]
  - PULMONARY EMBOLISM [None]
  - SKIN IRRITATION [None]
